FAERS Safety Report 7617829-9 (Version None)
Quarter: 2011Q3

REPORT INFORMATION
  Report Type: 
  Country: None (occurrence: None)
  Receive Date: 20110718
  Receipt Date: 20110706
  Transmission Date: 20111222
  Serious: No
  Sender: FDA-Public Use
  Company Number: US-ROXANE LABORATORIES, INC.-2011-RO-00980RO

PATIENT
  Sex: Female
  Weight: 59 kg

DRUGS (3)
  1. CODEINE SUL TAB [Suspect]
  2. NAPROXEN (ALEVE) [Concomitant]
  3. ZYRTEC [Concomitant]

REACTIONS (1)
  - HYPERSENSITIVITY [None]
